FAERS Safety Report 10181466 (Version 1)
Quarter: 2014Q2

REPORT INFORMATION
  Report Type: Spontaneous
  Country: DE (occurrence: DE)
  Receive Date: 20140519
  Receipt Date: 20140519
  Transmission Date: 20141212
  Serious: Yes (Hospitalization, Other)
  Sender: FDA-Public Use
  Company Number: DE-GILEAD-2014-0102716

PATIENT
  Age: 50 Year
  Sex: Female
  Weight: 65 kg

DRUGS (7)
  1. SOVALDI [Suspect]
     Indication: HEPATITIS C
     Dosage: 400 MG, QD
     Route: 048
     Dates: start: 20140414, end: 20140429
  2. PEGASYS [Suspect]
     Indication: HEPATITIS C
     Dosage: 180 ?G, QD
     Route: 058
     Dates: start: 20140314, end: 20140425
  3. COPEGUS [Suspect]
     Indication: HEPATITIS C
     Dosage: 1000 MG, QD
     Route: 048
     Dates: start: 20140314, end: 20140409
  4. COPEGUS [Suspect]
     Dosage: 800 MG, QD
     Route: 048
     Dates: start: 20140410, end: 20140416
  5. COPEGUS [Suspect]
     Dosage: 600 MG, QD
     Route: 048
     Dates: start: 20140417, end: 20140423
  6. COPEGUS [Suspect]
     Dosage: 400 MG, QD
     Route: 048
     Dates: start: 20140424, end: 20140429
  7. CITALOPRAM [Concomitant]
     Indication: DEPRESSION
     Dosage: 20 MG, QD
     Route: 048
     Dates: start: 20140225

REACTIONS (7)
  - Psychotic disorder [Recovering/Resolving]
  - Hallucination [Unknown]
  - Psychiatric decompensation [Unknown]
  - Delusion [Unknown]
  - Anaemia [Recovering/Resolving]
  - Confusional state [Unknown]
  - Vomiting [Unknown]
